FAERS Safety Report 9773219 (Version 3)
Quarter: 2014Q1

REPORT INFORMATION
  Report Type: Spontaneous
  Country: US (occurrence: US)
  Receive Date: 20131219
  Receipt Date: 20140303
  Transmission Date: 20141002
  Serious: Yes (Death, Hospitalization)
  Sender: FDA-Public Use
  Company Number: US-GLAXOSMITHKLINE-A1053560A

PATIENT
  Age: 57 Year
  Sex: Male

DRUGS (6)
  1. EPIVIR-HBV [Suspect]
     Indication: CHRONIC HEPATITIS B
     Route: 065
     Dates: start: 20130924, end: 201310
  2. LACTULOSE [Concomitant]
  3. METOPROLOL [Concomitant]
  4. HUMALOG INSULIN [Concomitant]
  5. LANTUS [Concomitant]
  6. LASIX [Concomitant]

REACTIONS (9)
  - Hepatorenal syndrome [Fatal]
  - Hypoxia [Fatal]
  - Encephalopathy [Unknown]
  - Ascites [Unknown]
  - Renal impairment [Unknown]
  - Hyponatraemia [Unknown]
  - Blood creatinine increased [Unknown]
  - Drug ineffective [Unknown]
  - Drug administration error [Unknown]
